FAERS Safety Report 6405109-9 (Version None)
Quarter: 2009Q4

REPORT INFORMATION
  Report Type: 
  Country: None (occurrence: None)
  Receive Date: 20091019
  Receipt Date: 20091006
  Transmission Date: 20100525
  Serious: Yes (Other)
  Sender: FDA-Public Use
  Company Number: CA-JNJFOC-20091001177

PATIENT
  Sex: Female

DRUGS (3)
  1. EXTRA STRENGTH TYLENOL SINUS DAYTIME [Suspect]
     Indication: NASOPHARYNGITIS
     Route: 048
  2. ANTIDEPRESSANT MEDICATION [Interacting]
     Indication: DRUG USE FOR UNKNOWN INDICATION
  3. ALL OTHER THERAPEUTIC PRODUCTS [Concomitant]
     Indication: DRUG USE FOR UNKNOWN INDICATION
     Route: 065

REACTIONS (3)
  - DRUG INTERACTION [None]
  - HYPERSENSITIVITY [None]
  - TACHYCARDIA [None]
